FAERS Safety Report 5191419-2 (Version None)
Quarter: 2006Q4

REPORT INFORMATION
  Report Type: 
  Country: None (occurrence: None)
  Receive Date: 20061226
  Receipt Date: 20061220
  Transmission Date: 20070319
  Serious: Yes (Other)
  Sender: FDA-Public Use
  Company Number: 2006SE06849

PATIENT
  Age: 22 Year
  Sex: Male
  Weight: 85 kg

DRUGS (2)
  1. SEROQUEL [Suspect]
     Indication: SCHIZOPHRENIA
     Route: 048
     Dates: start: 20061001
  2. TAVOR [Concomitant]
     Indication: SCHIZOPHRENIA
     Route: 048
     Dates: start: 20061001

REACTIONS (1)
  - RAYNAUD'S PHENOMENON [None]
